FAERS Safety Report 22373672 (Version 5)
Quarter: 2024Q1

REPORT INFORMATION
  Report Type: Report from Study
  Country: GB (occurrence: GB)
  Receive Date: 20230526
  Receipt Date: 20240118
  Transmission Date: 20240410
  Serious: Yes (Life-Threatening, Hospitalization, Other)
  Sender: FDA-Public Use
  Company Number: GB-002147023-NVSC2023GB019212

PATIENT
  Sex: Female

DRUGS (4)
  1. COSENTYX [Suspect]
     Active Substance: SECUKINUMAB
     Indication: Psoriasis
     Dosage: 300 MG, QMO
     Route: 058
     Dates: start: 2017
  2. COSENTYX [Suspect]
     Active Substance: SECUKINUMAB
     Dosage: 300 MG, QMO
     Route: 058
     Dates: start: 202305
  3. COSENTYX [Suspect]
     Active Substance: SECUKINUMAB
     Dosage: 300 MG, QMO (TWO PENS)
     Route: 058
  4. THYROXINE [Concomitant]
     Active Substance: LEVOTHYROXINE
     Indication: Product used for unknown indication
     Dosage: UNK
     Route: 065

REACTIONS (15)
  - Cerebrovascular accident [Unknown]
  - Blindness [Unknown]
  - Feeling abnormal [Unknown]
  - Pain [Unknown]
  - Hypertension [Unknown]
  - Rash [Unknown]
  - Gait disturbance [Unknown]
  - Neck pain [Unknown]
  - Joint swelling [Unknown]
  - Insomnia [Unknown]
  - Bone pain [Unknown]
  - Product distribution issue [Unknown]
  - Device issue [Unknown]
  - Accidental exposure to product [Unknown]
  - Incorrect dose administered by device [Unknown]
